FAERS Safety Report 14618147 (Version 1)
Quarter: 2018Q1

REPORT INFORMATION
  Report Type: Spontaneous
  Country: US (occurrence: US)
  Receive Date: 20180309
  Receipt Date: 20180309
  Transmission Date: 20180509
  Serious: No
  Sender: FDA-Public Use
  Company Number: US-TARO-2017TAR00851

PATIENT
  Age: 4 Month
  Sex: Female
  Weight: 7.75 kg

DRUGS (1)
  1. NYSTATIN CREAM USP 100,000 UNITS/G [Suspect]
     Active Substance: NYSTATIN
     Indication: CANDIDA NAPPY RASH
     Dosage: UNK UNK, 4X/DAY
     Route: 061
     Dates: start: 20170923, end: 20170927

REACTIONS (4)
  - Product quality issue [Recovered/Resolved]
  - Candida nappy rash [Recovered/Resolved]
  - Reaction to excipient [Recovered/Resolved]
  - Drug ineffective [Recovered/Resolved]

NARRATIVE: CASE EVENT DATE: 201709
